FAERS Safety Report 4680059-7 (Version None)
Quarter: 2005Q2

REPORT INFORMATION
  Report Type: 
  Country: None (occurrence: None)
  Receive Date: 20050525
  Receipt Date: 20050131
  Transmission Date: 20051028
  Serious: No
  Sender: FDA-Public Use
  Company Number: SU-2005-003058

PATIENT
  Sex: Female

DRUGS (1)
  1. BENICAR [Suspect]
     Dosage: MG UNK PO
     Route: 048
     Dates: start: 20050101, end: 20050101

REACTIONS (1)
  - HEADACHE [None]
